FAERS Safety Report 25017210 (Version 1)
Quarter: 2025Q1

REPORT INFORMATION
  Report Type: Spontaneous
  Country: KW (occurrence: KW)
  Receive Date: 20250227
  Receipt Date: 20250227
  Transmission Date: 20250408
  Serious: Yes (Life-Threatening, Hospitalization, Other)
  Sender: STRIDES
  Company Number: KW-STRIDES ARCOLAB LIMITED-2025SP002382

PATIENT
  Age: 27 Year
  Sex: Female

DRUGS (2)
  1. VERAPAMIL [Suspect]
     Active Substance: VERAPAMIL HYDROCHLORIDE
     Indication: Product used for unknown indication
     Route: 048
  2. ESZOPICLONE [Concomitant]
     Active Substance: ESZOPICLONE
     Indication: Anxiety
     Route: 065

REACTIONS (10)
  - Shock [Unknown]
  - Lactic acidosis [Unknown]
  - Vasodilatation [Unknown]
  - Arrhythmia [Unknown]
  - Acute pulmonary oedema [Unknown]
  - Cardiac arrest [Unknown]
  - Atrioventricular block complete [Unknown]
  - Bradycardia [Unknown]
  - Toxicity to various agents [Unknown]
  - Intentional overdose [Unknown]
